FAERS Safety Report 12050127 (Version 1)
Quarter: 2016Q1

REPORT INFORMATION
  Report Type: Spontaneous
  Country: US (occurrence: US)
  Receive Date: 20160208
  Receipt Date: 20160208
  Transmission Date: 20160526
  Serious: Yes (Hospitalization, Other)
  Sender: FDA-Public Use
  Company Number: US-DSJP-DSU-2016-104217

PATIENT

DRUGS (6)
  1. ZETIA [Concomitant]
     Active Substance: EZETIMIBE
     Indication: HYPERLIPIDAEMIA
     Dosage: UNK
  2. WELCHOL [Suspect]
     Active Substance: COLESEVELAM HYDROCHLORIDE
     Indication: HYPERLIPIDAEMIA
     Dosage: 3750 MG, QD
     Route: 048
     Dates: start: 2003
  3. UNKNOWN STATIN [Suspect]
     Active Substance: UNSPECIFIED INGREDIENT
     Indication: HYPERLIPIDAEMIA
     Dosage: UNK
     Dates: end: 2013
  4. ELIQUIS [Concomitant]
     Active Substance: APIXABAN
     Indication: ANTICOAGULANT THERAPY
     Dosage: 1 DF, BID
  5. WARFARIN [Suspect]
     Active Substance: WARFARIN
     Indication: COAGULOPATHY
     Dosage: 1 DF, QD
     Route: 048
     Dates: start: 2004, end: 2013
  6. XARELTO [Suspect]
     Active Substance: RIVAROXABAN
     Indication: COAGULOPATHY
     Dosage: UNK, QD
     Route: 048
     Dates: start: 2013

REACTIONS (20)
  - Sepsis [Recovered/Resolved]
  - Coagulopathy [Unknown]
  - Blood homocysteine increased [Unknown]
  - Pulmonary embolism [Recovered/Resolved]
  - Deep vein thrombosis [Unknown]
  - International normalised ratio fluctuation [Recovered/Resolved]
  - Nephrolithiasis [Recovered/Resolved]
  - Urticaria [Unknown]
  - Fatigue [Unknown]
  - Platelet count decreased [Unknown]
  - Insomnia [Unknown]
  - Peripheral swelling [Unknown]
  - Neuropathy peripheral [Unknown]
  - Antiphospholipid syndrome [Unknown]
  - Muscle haemorrhage [Unknown]
  - Hypogonadism [Unknown]
  - Pulmonary oedema [Recovered/Resolved]
  - Ocular myasthenia [Unknown]
  - Pain [Unknown]
  - Muscle strain [Recovered/Resolved]

NARRATIVE: CASE EVENT DATE: 2004
